FAERS Safety Report 6429186-4 (Version None)
Quarter: 2009Q4

REPORT INFORMATION
  Report Type: 
  Country: None (occurrence: None)
  Receive Date: 20091105
  Receipt Date: 20091029
  Transmission Date: 20100525
  Serious: Yes (Other)
  Sender: FDA-Public Use
  Company Number: US-AMGEN-US371958

PATIENT
  Sex: Female
  Weight: 95.8 kg

DRUGS (3)
  1. NPLATE [Suspect]
     Indication: IDIOPATHIC THROMBOCYTOPENIC PURPURA
     Route: 058
     Dates: start: 20090801
  2. INFLUENZA VACCINE [Concomitant]
     Route: 030
     Dates: start: 20091021, end: 20091021
  3. DYAZIDE [Concomitant]
     Route: 065

REACTIONS (3)
  - EPISTAXIS [None]
  - PETECHIAE [None]
  - PLATELET COUNT DECREASED [None]
